FAERS Safety Report 8687219 (Version 3)
Quarter: 2012Q4

REPORT INFORMATION
  Report Type: 
  Country: JP (occurrence: JP)
  Receive Date: 20120727
  Receipt Date: 20121004
  Transmission Date: 20130627
  Serious: Yes (Death, Hospitalization)
  Sender: FDA-Public Use
  Company Number: PHHY2012JP061087

PATIENT
  Age: 88 Year
  Sex: Male

DRUGS (4)
  1. RIVASTIGMINE [Suspect]
     Indication: DEMENTIA ALZHEIMER^S TYPE
     Dosage: 4.5 mg, QD
     Route: 062
     Dates: start: 20120229
  2. RIVASTIGMINE [Suspect]
     Dosage: 18 mg, QD
     Route: 062
  3. RIVASTIGMINE [Suspect]
     Dosage: 9 mg, QD
     Route: 062
     Dates: start: 201205
  4. RIVASTIGMINE [Suspect]
     Dosage: 4.5 mg, QD
     Route: 062

REACTIONS (6)
  - Death [Fatal]
  - Oesophageal carcinoma [Unknown]
  - Decreased appetite [Not Recovered/Not Resolved]
  - Pneumonia [Recovered/Resolved]
  - Generalised oedema [None]
  - Pleural effusion [None]
